FAERS Safety Report 7956185 (Version 6)
Quarter: 2013Q2

REPORT INFORMATION
  Report Type: Spontaneous
  Country: US (occurrence: US)
  Receive Date: 20110523
  Receipt Date: 20130625
  Transmission Date: 20140414
  Serious: Yes (Life-Threatening, Hospitalization, Congenital Anomaly, Other)
  Sender: FDA-Public Use
  Company Number: US-PFIZER INC-2011105788

PATIENT
  Sex: Female
  Weight: 2.7 kg

DRUGS (3)
  1. EFFEXOR [Suspect]
     Indication: DEPRESSION
     Dosage: UNK
     Route: 064
     Dates: start: 2003
  2. EFFEXOR [Suspect]
     Dosage: 150 MG, UNK
     Route: 064
  3. ZOLOFT [Suspect]
     Dosage: UNK
     Route: 064

REACTIONS (11)
  - Foetal exposure during pregnancy [Unknown]
  - Ventricular septal defect [Recovered/Resolved]
  - Haemangioma [Recovering/Resolving]
  - Atrial septal defect [Not Recovered/Not Resolved]
  - Jaundice neonatal [Unknown]
  - Right ventricular hypertrophy [Unknown]
  - Failure to thrive [Unknown]
  - Cardiomegaly [Unknown]
  - Supraventricular extrasystoles [Unknown]
  - Atelectasis [Unknown]
  - Trigger finger [Unknown]
